FAERS Safety Report 4638322-1 (Version None)
Quarter: 2005Q2

REPORT INFORMATION
  Report Type: 
  Country: None (occurrence: None)
  Receive Date: 20050418
  Receipt Date: 20050413
  Transmission Date: 20051028
  Serious: Yes (Life-Threatening, Hospitalization, Disabling)
  Sender: FDA-Public Use
  Company Number: US-MERCK-0504USA01996

PATIENT
  Age: 54 Year
  Sex: Male

DRUGS (2)
  1. PEPCID [Suspect]
     Route: 048
     Dates: start: 19970101
  2. VALIUM [Concomitant]
     Route: 065

REACTIONS (4)
  - MOVEMENT DISORDER [None]
  - PALPITATIONS [None]
  - PANCREATITIS [None]
  - PRESCRIBED OVERDOSE [None]
